FAERS Safety Report 4609848-1 (Version None)
Quarter: 2005Q1

REPORT INFORMATION
  Report Type: 
  Country: None (occurrence: None)
  Receive Date: 20050316
  Receipt Date: 20050309
  Transmission Date: 20050727
  Serious: Yes (Hospitalization)
  Sender: FDA-Public Use
  Company Number: US-BRISTOL-MYERS SQUIBB COMPANY-12893442

PATIENT
  Age: 75 Year
  Sex: Female
  Weight: 51 kg

DRUGS (2)
  1. CETUXIMAB [Suspect]
     Indication: PANCREATIC CARCINOMA
     Dosage: INITIAL TX DATE:15-DEC-04/1147.5MG(TOTAL DOSE ADM THIS COURSE)/W12 HELD/C4D13 PT DID NOT SHOW FOR TX
     Route: 042
     Dates: start: 20050223, end: 20050223
  2. GEMCITABINE [Suspect]
     Indication: PANCREATIC CARCINOMA
     Dosage: INITIAL TX DATE:15-DEC-04/4590MG(TOTAL DOSE ADM THIS COURSE)/W12 HELD/C4D13 PT DID NOT SHOW FOR TX.
     Route: 042
     Dates: start: 20050223, end: 20050223

REACTIONS (5)
  - ACTIVATED PARTIAL THROMBOPLASTIN TIME PROLONGED [None]
  - ATRIAL TACHYCARDIA [None]
  - MYOCARDIAL INFARCTION [None]
  - PNEUMONIA [None]
  - VENTRICULAR HYPERTROPHY [None]
